FAERS Safety Report 8136003-3 (Version None)
Quarter: 2012Q1

REPORT INFORMATION
  Report Type: 
  Country: None (occurrence: None)
  Receive Date: 20120210
  Receipt Date: 20120202
  Transmission Date: 20120608
  Serious: Yes (Death)
  Sender: FDA-Public Use
  Company Number: ACO_29282_2012

PATIENT
  Age: 55 Year
  Sex: Female

DRUGS (6)
  1. IMURAN [Concomitant]
  2. MYSOLINE [Concomitant]
  3. AMPYRA [Suspect]
     Indication: MULTIPLE SCLEROSIS
     Dosage: 10 MG, BID, ORAL
     Route: 048
     Dates: start: 20110728
  4. REBIF [Concomitant]
  5. AMANTADINE HCL [Concomitant]
  6. VESICARE [Concomitant]

REACTIONS (1)
  - DEATH [None]
